FAERS Safety Report 14599089 (Version 1)
Quarter: 2018Q1

REPORT INFORMATION
  Report Type: Spontaneous
  Country: DE (occurrence: DE)
  Receive Date: 20180305
  Receipt Date: 20180305
  Transmission Date: 20180509
  Serious: Yes (Hospitalization, Other)
  Sender: FDA-Public Use
  Company Number: DE-009507513-1802DEU011959

PATIENT
  Age: 38 Year
  Sex: Female

DRUGS (3)
  1. ORGALUTRAN [Suspect]
     Active Substance: GANIRELIX ACETATE
     Indication: MANAGEMENT OF REPRODUCTION
     Dosage: 0.25 MG, QD
     Dates: start: 2018
  2. PERGOVERIS [Suspect]
     Active Substance: FOLLITROPIN\LUTROPIN ALFA
     Indication: MANAGEMENT OF REPRODUCTION
     Dosage: 225 IU, QD
     Dates: start: 2018
  3. OVITRELLE [Suspect]
     Active Substance: CHORIOGONADOTROPIN ALFA
     Indication: MANAGEMENT OF REPRODUCTION
     Dates: start: 20180122

REACTIONS (3)
  - Abdominal discomfort [Unknown]
  - Ovarian hyperstimulation syndrome [Unknown]
  - Waist circumference increased [Unknown]

NARRATIVE: CASE EVENT DATE: 2018
